FAERS Safety Report 22045575 (Version 1)
Quarter: 2023Q1

REPORT INFORMATION
  Report Type: Spontaneous
  Country: FR (occurrence: FR)
  Receive Date: 20230228
  Receipt Date: 20230228
  Transmission Date: 20230418
  Serious: Yes (Disabling)
  Sender: FDA-Public Use
  Company Number: None

PATIENT
  Age: 73 Year
  Sex: Female
  Weight: 59 kg

DRUGS (10)
  1. GEMCITABINE HYDROCHLORIDE [Suspect]
     Active Substance: GEMCITABINE HYDROCHLORIDE
     Indication: Adenocarcinoma pancreas
     Dosage: 1600 MG, WEEKLY (1/W)
     Route: 042
     Dates: start: 20221108
  2. GEMCITABINE HYDROCHLORIDE [Suspect]
     Active Substance: GEMCITABINE HYDROCHLORIDE
     Dosage: 1600 MG, WEEKLY (1/W)
     Route: 042
     Dates: end: 20221122
  3. IRINOTECAN [Suspect]
     Active Substance: IRINOTECAN
     Indication: Adenocarcinoma pancreas
     Dosage: 500 MG, UNKNOWN
     Route: 042
     Dates: start: 20221206, end: 20221206
  4. OXALIPLATIN [Suspect]
     Active Substance: OXALIPLATIN
     Indication: Adenocarcinoma pancreas
     Dosage: 140 MG, UNKNOWN
     Route: 042
     Dates: start: 20221206, end: 20221206
  5. CHLORPROMAZINE HYDROCHLORIDE [Suspect]
     Active Substance: CHLORPROMAZINE HYDROCHLORIDE
     Indication: Nausea
     Dosage: UNK UNK, UNKNOWN
     Route: 042
     Dates: start: 202212, end: 202212
  6. CAPECITABINE [Suspect]
     Active Substance: CAPECITABINE
     Indication: Adenocarcinoma pancreas
     Dosage: 3950 MG, UNKNOWN
     Route: 048
     Dates: start: 20221206, end: 20221206
  7. LEVOLEUCOVORIN CALCIUM [Suspect]
     Active Substance: LEVOLEUCOVORIN CALCIUM
     Indication: Adenocarcinoma pancreas
     Dosage: 330 MG, UNKNOWN
     Route: 042
     Dates: start: 20221206, end: 20221206
  8. FLUOROURACIL [Suspect]
     Active Substance: FLUOROURACIL
     Indication: Adenocarcinoma pancreas
     Dosage: 650 MG, UNKNOWN
     Route: 042
     Dates: start: 20221206, end: 20221206
  9. ABRAXANE [Concomitant]
     Active Substance: PACLITAXEL
     Indication: Adenocarcinoma pancreas
     Dosage: 205 MG, WEEKLY (1/W)
     Route: 042
     Dates: start: 20221108
  10. ABRAXANE [Concomitant]
     Active Substance: PACLITAXEL
     Dosage: 205 MG, WEEKLY (1/W)
     Route: 042
     Dates: end: 20221122

REACTIONS (1)
  - Angle closure glaucoma [Not Recovered/Not Resolved]

NARRATIVE: CASE EVENT DATE: 20221223
